FAERS Safety Report 15491283 (Version 1)
Quarter: 2018Q4

REPORT INFORMATION
  Report Type: Report from Study
  Country: US (occurrence: US)
  Receive Date: 20181012
  Receipt Date: 20181012
  Transmission Date: 20190205
  Serious: Yes (Hospitalization, Other)
  Sender: FDA-Public Use
  Company Number: US-GILEAD-2018-0367481

PATIENT
  Age: 75 Year
  Sex: Female

DRUGS (15)
  1. ROSUVASTATIN. [Concomitant]
     Active Substance: ROSUVASTATIN
  2. FUROSEMIDE. [Concomitant]
     Active Substance: FUROSEMIDE
  3. ASPIRIN. [Concomitant]
     Active Substance: ASPIRIN
  4. LISINOPRIL. [Concomitant]
     Active Substance: LISINOPRIL
  5. AMBRISENTAN [Suspect]
     Active Substance: AMBRISENTAN
     Indication: PULMONARY ARTERIAL HYPERTENSION
     Dosage: 10 MG, QD
     Route: 065
     Dates: start: 20180523
  6. ELIQUIS [Concomitant]
     Active Substance: APIXABAN
  7. TORSEMIDE. [Concomitant]
     Active Substance: TORSEMIDE
  8. ISOSORB MONO [Concomitant]
     Active Substance: ISOSORBIDE MONONITRATE
  9. OLOPATADINE. [Concomitant]
     Active Substance: OLOPATADINE
  10. METOPROLOL. [Concomitant]
     Active Substance: METOPROLOL
  11. AMLODIPINE [Concomitant]
     Active Substance: AMLODIPINE BESYLATE
  12. GLIMEPIRIDE. [Concomitant]
     Active Substance: GLIMEPIRIDE
  13. APAP/CODEINE [Concomitant]
     Active Substance: ACETAMINOPHEN\CODEINE PHOSPHATE
  14. JANUVIA [Concomitant]
     Active Substance: SITAGLIPTIN PHOSPHATE
  15. ATORVASTATIN [Concomitant]
     Active Substance: ATORVASTATIN

REACTIONS (1)
  - Pneumonia [Unknown]
